FAERS Safety Report 19233471 (Version 3)
Quarter: 2021Q2

REPORT INFORMATION
  Report Type: Report from Study
  Country: NL (occurrence: NL)
  Receive Date: 20210507
  Receipt Date: 20210630
  Transmission Date: 20210717
  Serious: Yes (Hospitalization, Other)
  Sender: FDA-Public Use
  Company Number: NL-GLAXOSMITHKLINE-NL2020GSK247224

PATIENT
  Age: 52 Year
  Sex: Female
  Weight: 101 kg

DRUGS (18)
  1. DOSTARLIMAB [Suspect]
     Active Substance: DOSTARLIMAB
     Indication: ENDOMETRIAL CANCER
     Dosage: 500 MG, U
     Dates: start: 20201106, end: 20201106
  2. METOCLOPRAMIDE. [Concomitant]
     Active Substance: METOCLOPRAMIDE
     Dosage: UNK
  3. CARBOPLATIN (NON?GSK COMPARATOR) [Suspect]
     Active Substance: CARBOPLATIN
     Dosage: 600 AUC
     Route: 042
     Dates: start: 20201127, end: 20201127
  4. METFORMIN [Concomitant]
     Active Substance: METFORMIN HYDROCHLORIDE
     Indication: HYPERGLYCAEMIA
     Dosage: 1000 MG, BID
     Route: 048
     Dates: start: 20201126
  5. PARACETAMOL [Concomitant]
     Active Substance: ACETAMINOPHEN
     Dosage: UNK
  6. DOSTARLIMAB [Suspect]
     Active Substance: DOSTARLIMAB
     Dosage: 500 MG, U
     Dates: start: 20201127, end: 20201127
  7. INSULIN ASPART FLEXPEN [Concomitant]
     Active Substance: INSULIN ASPART
     Indication: HYPERGLYCAEMIA
     Dosage: 10 IU
     Route: 058
     Dates: start: 20201217
  8. OXAZEPAM. [Concomitant]
     Active Substance: OXAZEPAM
     Indication: ANXIETY
     Dosage: 10 MG, TID, AS NEEDED
     Route: 048
     Dates: start: 20201224
  9. LOSARTAN. [Concomitant]
     Active Substance: LOSARTAN
     Dosage: UNK
  10. ASA [Concomitant]
     Active Substance: ASPIRIN
     Indication: PAIN
     Dosage: 80 MG, QD
     Dates: start: 20201217
  11. CARBOPLATIN (NON?GSK COMPARATOR) [Suspect]
     Active Substance: CARBOPLATIN
     Indication: ENDOMETRIAL CANCER
     Dosage: 5 AUC
     Route: 042
     Dates: start: 20201106, end: 20201106
  12. PACLITAXEL. [Suspect]
     Active Substance: PACLITAXEL
     Dosage: 350 MG/M2
     Route: 042
     Dates: start: 20201127, end: 20201127
  13. CICLOPIROX. [Concomitant]
     Active Substance: CICLOPIROX
     Indication: SKIN CANDIDA
     Dosage: 10 MG/G
     Route: 061
     Dates: start: 20201116
  14. MACROGOL [Concomitant]
     Active Substance: POLYETHYLENE GLYCOLS
     Dosage: UNK
  15. PACLITAXEL. [Suspect]
     Active Substance: PACLITAXEL
     Indication: ENDOMETRIAL CANCER
     Dosage: 175 MG/M2
     Route: 042
     Dates: start: 20201106, end: 20201106
  16. FLUCONAZOLE. [Concomitant]
     Active Substance: FLUCONAZOLE
     Indication: SKIN CANDIDA
     Dosage: 100 MG, QD
     Route: 048
     Dates: start: 20201116, end: 20201130
  17. CLINDAMYCIN. [Concomitant]
     Active Substance: CLINDAMYCIN
     Indication: RASH
     Dosage: 10MG/ML, QD
     Route: 061
     Dates: start: 20201207, end: 20201231
  18. DEXAMETHASONE. [Concomitant]
     Active Substance: DEXAMETHASONE
     Dosage: UNK

REACTIONS (5)
  - Condition aggravated [Not Recovered/Not Resolved]
  - Troponin increased [Not Recovered/Not Resolved]
  - Blood creatine phosphokinase increased [Recovered/Resolved]
  - Myocarditis [Recovered/Resolved]
  - Myocarditis [Not Recovered/Not Resolved]

NARRATIVE: CASE EVENT DATE: 20201213
